FAERS Safety Report 19429479 (Version 1)
Quarter: 2021Q2

REPORT INFORMATION
  Report Type: Spontaneous
  Country: NL (occurrence: NL)
  Receive Date: 20210617
  Receipt Date: 20210617
  Transmission Date: 20210717
  Serious: Yes (Other)
  Sender: FDA-Public Use
  Company Number: NL-TEVA-2021-NL-1921997

PATIENT
  Age: 44 Year
  Sex: Male
  Weight: 95 kg

DRUGS (1)
  1. BUPROPION TABLET MGA 150MG / BRAND NAME NOT SPECIFIED [Suspect]
     Active Substance: BUPROPION
     Indication: ATTENTION DEFICIT HYPERACTIVITY DISORDER
     Dosage: 150 MILLIGRAM DAILY;
     Dates: start: 20210426, end: 20210514

REACTIONS (1)
  - Acute generalised exanthematous pustulosis [Recovering/Resolving]

NARRATIVE: CASE EVENT DATE: 20210514
